FAERS Safety Report 23134049 (Version 1)
Quarter: 2023Q4

REPORT INFORMATION
  Report Type: Spontaneous
  Country: US (occurrence: US)
  Receive Date: 20231101
  Receipt Date: 20231101
  Transmission Date: 20240110
  Serious: No
  Sender: FDA-Public Use
  Company Number: US-TAKEDA-2023TUS105447

PATIENT
  Sex: Female
  Weight: 63.492 kg

DRUGS (3)
  1. VYVANSE [Suspect]
     Active Substance: LISDEXAMFETAMINE DIMESYLATE
     Indication: Attention deficit hyperactivity disorder
     Dosage: 30 MILLIGRAM, QD
     Route: 065
  2. CELEXA [Concomitant]
     Active Substance: CITALOPRAM HYDROBROMIDE
     Dosage: 10 MILLIGRAM
     Route: 065
  3. TRAZODONE [Concomitant]
     Active Substance: TRAZODONE HYDROCHLORIDE
     Dosage: 50 MILLIGRAM, QD
     Route: 065

REACTIONS (8)
  - Product quality issue [Unknown]
  - Palpitations [Unknown]
  - Blood pressure increased [Unknown]
  - Anxiety [Unknown]
  - Insomnia [Unknown]
  - Chest pain [Unknown]
  - Product use issue [Unknown]
  - Prescription drug used without a prescription [Unknown]
